FAERS Safety Report 16663705 (Version 2)
Quarter: 2019Q3

REPORT INFORMATION
  Report Type: Report from Study
  Country: DE (occurrence: DE)
  Receive Date: 20190802
  Receipt Date: 20190926
  Transmission Date: 20191004
  Serious: Yes (Death, Hospitalization)
  Sender: FDA-Public Use
  Company Number: DE-JNJFOC-20190739181

PATIENT
  Age: 79 Year
  Sex: Male
  Weight: 71.4 kg

DRUGS (5)
  1. CARVEDILOL. [Concomitant]
     Active Substance: CARVEDILOL
     Route: 065
     Dates: start: 20190715, end: 20190719
  2. TRABECTEDIN [Suspect]
     Active Substance: TRABECTEDIN
     Indication: SOFT TISSUE SARCOMA
     Dosage: CYCLE 1
     Route: 042
     Dates: start: 20190717, end: 20190717
  3. CANDESARTAN CILEXETIL. [Concomitant]
     Active Substance: CANDESARTAN CILEXETIL
     Route: 065
     Dates: start: 20190715, end: 20190719
  4. METAMIZOL NATRIUM [Concomitant]
     Route: 065
     Dates: start: 20190715, end: 20190719
  5. TINZAPARIN SODIUM [Concomitant]
     Active Substance: TINZAPARIN SODIUM
     Dosage: 10000 I.E ANTI-XA
     Route: 065
     Dates: start: 20190715, end: 20190719

REACTIONS (3)
  - Haematotoxicity [Fatal]
  - Acute kidney injury [Fatal]
  - Hepatotoxicity [Fatal]

NARRATIVE: CASE EVENT DATE: 20190722
